FAERS Safety Report 5039197-1 (Version None)
Quarter: 2006Q2

REPORT INFORMATION
  Report Type: 
  Country: None (occurrence: None)
  Receive Date: 20060623
  Receipt Date: 20060613
  Transmission Date: 20061013
  Serious: Yes (Other)
  Sender: FDA-Public Use
  Company Number: 2005092493

PATIENT
  Sex: Male

DRUGS (3)
  1. CELEBREX [Suspect]
     Indication: RHEUMATOID ARTHRITIS
     Dosage: 200 MG (200 MG 1 IN 1 D)
     Dates: end: 20050208
  2. ETODOLAC [Suspect]
     Indication: RHEUMATOID ARTHRITIS
     Dosage: 900 MG (300 MG 3 IN 1 D)
     Dates: start: 20050201
  3. TYLENOL [Suspect]
     Indication: RHEUMATOID ARTHRITIS
     Dosage: 2600 MG (650 MG 1 IN 1 D)
     Dates: start: 20050201

REACTIONS (7)
  - BASAL CELL CARCINOMA [None]
  - DIFFICULTY IN WALKING [None]
  - DRUG INEFFECTIVE [None]
  - DRUG INTOLERANCE [None]
  - INGROWING NAIL [None]
  - INSOMNIA [None]
  - MUSCULOSKELETAL STIFFNESS [None]
